FAERS Safety Report 18242392 (Version 1)
Quarter: 2020Q3

REPORT INFORMATION
  Report Type: Spontaneous
  Country: US (occurrence: US)
  Receive Date: 20200908
  Receipt Date: 20200908
  Transmission Date: 20201103
  Serious: No
  Sender: FDA-Public Use
  Company Number: None

PATIENT
  Age: 95 Year
  Sex: Male

DRUGS (2)
  1. PREDNISONE 5MG [Suspect]
     Active Substance: PREDNISONE
     Route: 048
     Dates: start: 20200707
  2. ABIRATERONE 250MG [Suspect]
     Active Substance: ABIRATERONE
     Indication: PROSTATE CANCER
     Route: 048
     Dates: start: 20200707

REACTIONS (7)
  - Somnolence [None]
  - Hypotension [None]
  - Memory impairment [None]
  - Prostatic haemorrhage [None]
  - Cerebrovascular accident [None]
  - Insomnia [None]
  - Cardiac disorder [None]

NARRATIVE: CASE EVENT DATE: 20200905
